FAERS Safety Report 5895404-4 (Version None)
Quarter: 2008Q3

REPORT INFORMATION
  Report Type: 
  Country: None (occurrence: None)
  Receive Date: 20080923
  Receipt Date: 20080923
  Transmission Date: 20090109
  Serious: Yes (Other)
  Sender: FDA-Public Use
  Company Number: None

PATIENT
  Age: 57 Year
  Sex: Female
  Weight: 67.1324 kg

DRUGS (2)
  1. SINGULAIR [Suspect]
     Indication: BREAST RECONSTRUCTION
     Dosage: 10MG TWICE DAILY PO
     Route: 048
     Dates: start: 20080306, end: 20080430
  2. SINGULAIR [Suspect]
     Indication: PROPHYLAXIS
     Dosage: 10MG TWICE DAILY PO
     Route: 048
     Dates: start: 20080306, end: 20080430

REACTIONS (3)
  - ATRIAL FIBRILLATION [None]
  - DRUG DOSE OMISSION [None]
  - PALPITATIONS [None]
